FAERS Safety Report 5648718-7 (Version None)
Quarter: 2008Q1

REPORT INFORMATION
  Report Type: 
  Country: None (occurrence: None)
  Receive Date: 20080229
  Receipt Date: 20080221
  Transmission Date: 20080703
  Serious: Yes (Other)
  Sender: FDA-Public Use
  Company Number: US-WYE-H02709008

PATIENT
  Age: 76 Year
  Sex: Female

DRUGS (2)
  1. CENTRUM CARDIO (MULTIVITAMIN/MULTIMINERAL/PHYTOSTEROLS, TABLET) [Suspect]
     Indication: NUTRITIONAL SUPPORT
     Dosage: 1 TABLET 1X PER 1 DAY ORAL
     Route: 048
     Dates: start: 20071201
  2. THYROID (THYORID) [Concomitant]

REACTIONS (2)
  - BLOOD PRESSURE INCREASED [None]
  - CONDITION AGGRAVATED [None]
